FAERS Safety Report 9288274 (Version 2)
Quarter: 2013Q3

REPORT INFORMATION
  Report Type: Report from Study
  Country: AU (occurrence: AU)
  Receive Date: 20130514
  Receipt Date: 20130703
  Transmission Date: 20140515
  Serious: Yes (Life-Threatening, Hospitalization, Other)
  Sender: FDA-Public Use
  Company Number: PHHY2013AU046622

PATIENT
  Age: 32 Year
  Sex: Male

DRUGS (7)
  1. CLOZARIL [Suspect]
     Indication: SCHIZOPHRENIA
     Dosage: 550 MG, QD
     Route: 048
     Dates: start: 20000719, end: 20130407
  2. CLOZARIL [Suspect]
     Dosage: UNK UKN, UNK
  3. DIAZEPAM [Concomitant]
     Indication: ANXIETY
     Dosage: 5 MG, TID
     Route: 048
  4. DIAZEPAM [Concomitant]
     Indication: AGITATION
  5. HALOPERIDOL [Concomitant]
     Indication: SCHIZOPHRENIA
     Dosage: 10 MG, MANE
     Route: 048
  6. BENZTROPINE [Concomitant]
     Indication: AKATHISIA
     Dosage: 2 MG, MANE
     Route: 048
  7. GLIVEC [Concomitant]
     Dosage: 300 MG, QD
     Route: 048
     Dates: end: 201204

REACTIONS (5)
  - Suicide attempt [Recovered/Resolved]
  - Poisoning deliberate [Unknown]
  - Depressed mood [Recovered/Resolved]
  - Agitation [Unknown]
  - Restlessness [Unknown]
